FAERS Safety Report 8323450-X (Version None)
Quarter: 2012Q2

REPORT INFORMATION
  Report Type: 
  Country: None (occurrence: None)
  Receive Date: 20120501
  Receipt Date: 20120423
  Transmission Date: 20120825
  Serious: Yes (Other)
  Sender: FDA-Public Use
  Company Number: US-AMGEN-USASP2011053012

PATIENT
  Age: 46 Year
  Sex: Male

DRUGS (1)
  1. ENBREL [Suspect]
     Indication: PSORIASIS
     Dosage: 50 MG, 2 TIMES/WK
     Dates: start: 20111005

REACTIONS (20)
  - RETCHING [None]
  - INJECTION SITE PAIN [None]
  - MUSCLE SPASMS [None]
  - OEDEMA PERIPHERAL [None]
  - HEPATIC ENZYME INCREASED [None]
  - SOMNOLENCE [None]
  - NIGHT SWEATS [None]
  - HYPERSOMNIA [None]
  - WALKING AID USER [None]
  - CHILLS [None]
  - BALANCE DISORDER [None]
  - JOINT SWELLING [None]
  - HYPERTENSION [None]
  - HYPOAESTHESIA [None]
  - INSOMNIA [None]
  - NECK PAIN [None]
  - ABDOMINAL PAIN [None]
  - JOINT INJURY [None]
  - BACK PAIN [None]
  - PSORIASIS [None]
